FAERS Safety Report 9742823 (Version 2)
Quarter: 2013Q4

REPORT INFORMATION
  Report Type: Spontaneous
  Country: JP (occurrence: JP)
  Receive Date: 20131210
  Receipt Date: 20131220
  Transmission Date: 20140711
  Serious: Yes (Hospitalization)
  Sender: FDA-Public Use
  Company Number: JP-JNJFOC-20131203482

PATIENT
  Age: 87 Year
  Sex: Male
  Weight: 45 kg

DRUGS (2)
  1. XARELTO [Suspect]
     Indication: ATRIAL FIBRILLATION
     Route: 048
     Dates: start: 20131127, end: 20131129
  2. XARELTO [Suspect]
     Indication: CEREBROVASCULAR ACCIDENT PROPHYLAXIS
     Route: 048
     Dates: start: 20131127, end: 20131129

REACTIONS (3)
  - Depressed level of consciousness [Unknown]
  - Asthenia [Unknown]
  - International normalised ratio increased [Recovered/Resolved]
